FAERS Safety Report 15791442 (Version 2)
Quarter: 2019Q1

REPORT INFORMATION
  Report Type: Spontaneous
  Country: US (occurrence: US)
  Receive Date: 20190104
  Receipt Date: 20190114
  Transmission Date: 20190417
  Serious: Yes (Death, Hospitalization, Other)
  Sender: FDA-Public Use
  Company Number: US-GLAXOSMITHKLINE-US2018GSK233971

PATIENT
  Age: 54 Year
  Sex: Female

DRUGS (5)
  1. BUPROPION. [Suspect]
     Active Substance: BUPROPION
     Dosage: UNK
     Route: 051
  2. INSULIN ASPART [Suspect]
     Active Substance: INSULIN ASPART
     Dosage: UNK
     Route: 051
  3. GABAPENTIN. [Suspect]
     Active Substance: GABAPENTIN
     Dosage: UNK
     Route: 051
  4. DILTIAZEM. [Suspect]
     Active Substance: DILTIAZEM
     Dosage: UNK
     Route: 051
  5. LITHIUM. [Suspect]
     Active Substance: LITHIUM
     Dosage: UNK
     Route: 051

REACTIONS (2)
  - Overdose [Fatal]
  - Completed suicide [Fatal]
